FAERS Safety Report 7640183-3 (Version None)
Quarter: 2011Q3

REPORT INFORMATION
  Report Type: 
  Country: None (occurrence: None)
  Receive Date: 20110728
  Receipt Date: 20110512
  Transmission Date: 20111222
  Serious: Yes (Other)
  Sender: FDA-Public Use
  Company Number: US-BAYER-200920142NA

PATIENT
  Age: 62 Year
  Sex: Male
  Weight: 82.993 kg

DRUGS (26)
  1. GADOLINIUM IN UNSPECIFIED DRUG [Suspect]
  2. OMNISCAN [Suspect]
     Indication: NUCLEAR MAGNETIC RESONANCE IMAGING
     Dosage: 20 ML, ONCE
     Dates: start: 20030310, end: 20030310
  3. OPTIMARK [Suspect]
     Indication: NUCLEAR MAGNETIC RESONANCE IMAGING
  4. ACETAMINOPHEN AND OXYCODONE HCL [Concomitant]
  5. GADOLINIUM IN UNSPECIFIED DRUG [Suspect]
     Dosage: UNK
     Dates: start: 20030416, end: 20030416
  6. SIMVASTATIN [Concomitant]
  7. FLUOXETINE [Concomitant]
  8. GADOLINIUM IN UNSPECIFIED DRUG [Suspect]
     Indication: MAGNETIC RESONANCE CHOLANGIOPANCREATOGRAPHY
     Dosage: UNK
     Dates: start: 20030319, end: 20030319
  9. GADOLINIUM IN UNSPECIFIED DRUG [Suspect]
     Dosage: UNK
     Dates: start: 20030620, end: 20030620
  10. LISINOPRIL [Concomitant]
  11. PLAVIX [Concomitant]
  12. MIRTAZAPINE [Concomitant]
  13. GADOLINIUM IN UNSPECIFIED DRUG [Suspect]
     Dosage: UNK
     Dates: start: 20030513, end: 20030513
  14. LASIX [Concomitant]
  15. CLOPIDOGREL [Concomitant]
  16. GADOLINIUM IN UNSPECIFIED DRUG [Suspect]
     Indication: NUCLEAR MAGNETIC RESONANCE IMAGING
     Dosage: UNK
     Dates: start: 20030316, end: 20030316
  17. MULTIHANCE [Suspect]
     Indication: NUCLEAR MAGNETIC RESONANCE IMAGING
  18. PANCRELIPASE [Concomitant]
  19. POTASSIUM CHLORIDE [Concomitant]
  20. GADOLINIUM IN UNSPECIFIED DRUG [Suspect]
     Dosage: UNK
     Dates: start: 20030406, end: 20030406
  21. CLONAZEPAM [Concomitant]
  22. FUROSEMIDE [Concomitant]
  23. MAGNEVIST [Suspect]
     Indication: NUCLEAR MAGNETIC RESONANCE IMAGING
  24. PROHANCE [Suspect]
     Indication: NUCLEAR MAGNETIC RESONANCE IMAGING
  25. FERROUS SULFATE TAB [Concomitant]
  26. MEGESTROL ACETATE [Concomitant]

REACTIONS (14)
  - SKIN FIBROSIS [None]
  - MUSCULAR WEAKNESS [None]
  - MUSCULOSKELETAL DISORDER [None]
  - SKIN HYPERTROPHY [None]
  - PEAU D'ORANGE [None]
  - EMOTIONAL DISTRESS [None]
  - SKIN TIGHTNESS [None]
  - MYOSCLEROSIS [None]
  - MUSCULOSKELETAL STIFFNESS [None]
  - JOINT RANGE OF MOTION DECREASED [None]
  - SKIN INDURATION [None]
  - NEPHROGENIC SYSTEMIC FIBROSIS [None]
  - MOBILITY DECREASED [None]
  - PAIN [None]
